FAERS Safety Report 7323505-2 (Version None)
Quarter: 2011Q1

REPORT INFORMATION
  Report Type: 
  Country: None (occurrence: None)
  Receive Date: 20110301
  Receipt Date: 20110217
  Transmission Date: 20110831
  Serious: Yes (Other)
  Sender: FDA-Public Use
  Company Number: PHHY2011US13484

PATIENT
  Sex: Male

DRUGS (3)
  1. GLEEVEC [Suspect]
     Indication: CHRONIC MYELOID LEUKAEMIA
     Dosage: 300 MG, DAILY
     Route: 048
     Dates: start: 20110117
  2. LASIX [Concomitant]
     Indication: WEIGHT INCREASED
     Dosage: 40 MG, UNK
     Dates: start: 20110214
  3. METOLAZONE [Concomitant]
     Indication: WEIGHT INCREASED
     Dosage: 5 MG, UNK
     Dates: start: 20110214

REACTIONS (4)
  - DYSURIA [None]
  - FLUID RETENTION [None]
  - WEIGHT INCREASED [None]
  - KIDNEY INFECTION [None]
